FAERS Safety Report 24249797 (Version 1)
Quarter: 2024Q3

REPORT INFORMATION
  Report Type: Spontaneous
  Country: US (occurrence: None)
  Receive Date: 20240823
  Receipt Date: 20240823
  Transmission Date: 20241016
  Serious: No
  Sender: Public
  Company Number: None

PATIENT
  Age: 38 Year
  Sex: Female

DRUGS (1)
  1. XDEMVY [Suspect]
     Active Substance: LOTILANER
     Indication: Demodex blepharitis
     Dosage: OTHER QUANTITY : 1 GTT IN EACH EYE;?
     Route: 047
     Dates: start: 20240808

REACTIONS (2)
  - Ocular hyperaemia [None]
  - Blister [None]

NARRATIVE: CASE EVENT DATE: 20240810
